FAERS Safety Report 6998046-2 (Version None)
Quarter: 2010Q3

REPORT INFORMATION
  Report Type: 
  Country: None (occurrence: None)
  Receive Date: 20100920
  Receipt Date: 20070815
  Transmission Date: 20110219
  Serious: Yes (Other)
  Sender: FDA-Public Use
  Company Number: US-ASTRAZENECA-2006UW27925

PATIENT
  Age: 484 Month
  Sex: Male
  Weight: 93 kg

DRUGS (12)
  1. SEROQUEL [Suspect]
     Indication: BIPOLAR DISORDER
     Dosage: 25 MG, 200 MG
     Route: 048
     Dates: start: 19970601
  2. SEROQUEL [Suspect]
     Indication: AFFECTIVE DISORDER
     Dosage: 25 MG, 200 MG
     Route: 048
     Dates: start: 19970601
  3. SEROQUEL [Suspect]
     Indication: ANGER
     Dosage: 25 MG, 200 MG
     Route: 048
     Dates: start: 19970601
  4. SEROQUEL [Suspect]
     Dosage: 25-400 MG
     Route: 048
     Dates: start: 20000901
  5. SEROQUEL [Suspect]
     Dosage: 25-400 MG
     Route: 048
     Dates: start: 20000901
  6. SEROQUEL [Suspect]
     Dosage: 25-400 MG
     Route: 048
     Dates: start: 20000901
  7. ATIVAN [Concomitant]
     Indication: MOOD SWINGS
     Dosage: 0.5 - 4 MG
     Dates: start: 19971124
  8. DEPAKOTE [Concomitant]
     Indication: AFFECTIVE DISORDER
     Dosage: 250-1000 MG
     Dates: start: 19971126
  9. GLUCOPHAGE [Concomitant]
     Dosage: 500 MG - 2G
     Dates: start: 20000615
  10. ZESTRIL [Concomitant]
     Indication: MICROALBUMINURIA
     Dates: start: 20001110
  11. LIPITOR [Concomitant]
     Dates: start: 20001110
  12. ZANTAC [Concomitant]
     Indication: ABDOMINAL DISCOMFORT
     Dates: start: 20011011

REACTIONS (5)
  - BLOOD CHOLESTEROL INCREASED [None]
  - DIABETES MELLITUS [None]
  - HYPERTRIGLYCERIDAEMIA [None]
  - TYPE 1 DIABETES MELLITUS [None]
  - TYPE 2 DIABETES MELLITUS [None]
